FAERS Safety Report 14184592 (Version 1)
Quarter: 2017Q4

REPORT INFORMATION
  Report Type: Spontaneous
  Country: US (occurrence: US)
  Receive Date: 20171113
  Receipt Date: 20171113
  Transmission Date: 20180321
  Serious: Yes (Other)
  Sender: FDA-Public Use
  Company Number: US-MYLANLABS-2017M1070547

PATIENT
  Sex: Male
  Weight: 4 kg

DRUGS (1)
  1. ALPROSTADIL. [Suspect]
     Active Substance: ALPROSTADIL
     Indication: HYPOPLASTIC LEFT HEART SYNDROME
     Dosage: 0.03 MICROGRAM/KG/MIN
     Route: 050

REACTIONS (1)
  - Periostitis [Recovered/Resolved]
